FAERS Safety Report 18538074 (Version 1)
Quarter: 2020Q4

REPORT INFORMATION
  Report Type: Spontaneous
  Country: DE (occurrence: DE)
  Receive Date: 20201123
  Receipt Date: 20201123
  Transmission Date: 20210114
  Serious: Yes (Other)
  Sender: FDA-Public Use
  Company Number: DE-ASTRAZENECA-2020SF53819

PATIENT
  Age: 68 Year
  Sex: Female

DRUGS (9)
  1. TAMOXIFEN [Suspect]
     Active Substance: TAMOXIFEN
     Route: 048
     Dates: start: 201602, end: 201610
  2. PALBOCICLIB [Concomitant]
     Active Substance: PALBOCICLIB
     Route: 065
     Dates: start: 201611, end: 201711
  3. DENOSUMAB [Concomitant]
     Active Substance: DENOSUMAB
     Route: 065
     Dates: start: 201602, end: 201610
  4. LETROZOLE. [Concomitant]
     Active Substance: LETROZOLE
     Route: 065
     Dates: start: 201611, end: 201711
  5. ANASTROZOLE. [Suspect]
     Active Substance: ANASTROZOLE
     Route: 048
     Dates: start: 2008
  6. FULVESTRANT. [Suspect]
     Active Substance: FULVESTRANT
     Route: 030
     Dates: start: 201809, end: 202001
  7. DENOSUMAB [Concomitant]
     Active Substance: DENOSUMAB
     Route: 065
     Dates: start: 201712, end: 201809
  8. CAPECITABINE. [Concomitant]
     Active Substance: CAPECITABINE
     Route: 065
     Dates: start: 201712, end: 201809
  9. DENOSUMAB [Concomitant]
     Active Substance: DENOSUMAB
     Route: 065
     Dates: start: 201611, end: 201711

REACTIONS (5)
  - Metastases to bone [Unknown]
  - Metastases to liver [Unknown]
  - Metastases to lymph nodes [Unknown]
  - Malignant neoplasm progression [Unknown]
  - Metastases to lung [Unknown]

NARRATIVE: CASE EVENT DATE: 201601
